FAERS Safety Report 7341813-6 (Version None)
Quarter: 2011Q1

REPORT INFORMATION
  Report Type: 
  Country: None (occurrence: None)
  Receive Date: 20110309
  Receipt Date: 20110302
  Transmission Date: 20110831
  Serious: Yes (Other)
  Sender: FDA-Public Use
  Company Number: US-US-EMD SERONO, INC.-7030041

PATIENT
  Sex: Female
  Weight: 82 kg

DRUGS (4)
  1. REBIF [Suspect]
     Indication: MULTIPLE SCLEROSIS
     Route: 058
     Dates: start: 19990101, end: 20100601
  2. TYSABRI [Suspect]
     Indication: MULTIPLE SCLEROSIS
     Dates: start: 20100601, end: 20101001
  3. TETANUS AND WHOOPING COUGH IMMUNIZATION [Concomitant]
     Dates: start: 20100901, end: 20100901
  4. REBIF [Suspect]
     Route: 058
     Dates: start: 20101019

REACTIONS (2)
  - ARTHRITIS [None]
  - MUSCULOSKELETAL PAIN [None]
